FAERS Safety Report 10941526 (Version 1)
Quarter: 2015Q1

REPORT INFORMATION
  Report Type: Spontaneous
  Country: FR (occurrence: FR)
  Receive Date: 20150322
  Receipt Date: 20150322
  Transmission Date: 20150721
  Serious: Yes (Hospitalization, Other)
  Sender: FDA-Public Use
  Company Number: FR-ARIAD-2013FR002837

PATIENT
  Age: 70 Year
  Sex: Male

DRUGS (2)
  1. ICLUSIG [Suspect]
     Active Substance: PONATINIB
     Dosage: 30 MG, QD
     Route: 048
     Dates: start: 201303, end: 20130917
  2. ICLUSIG [Suspect]
     Active Substance: PONATINIB
     Indication: CHRONIC MYELOID LEUKAEMIA
     Dosage: 45 MG, QD
     Route: 048
     Dates: start: 20121227, end: 201303

REACTIONS (4)
  - Thrombocytopenia [Unknown]
  - Hypertension [Unknown]
  - Cardiac failure [Unknown]
  - Myocardial ischaemia [Recovered/Resolved with Sequelae]

NARRATIVE: CASE EVENT DATE: 201303
